FAERS Safety Report 5621962-0 (Version None)
Quarter: 2008Q1

REPORT INFORMATION
  Report Type: 
  Country: None (occurrence: None)
  Receive Date: 20080211
  Receipt Date: 20080205
  Transmission Date: 20080703
  Serious: Yes (Other)
  Sender: FDA-Public Use
  Company Number: B0503819A

PATIENT
  Age: 18 Year
  Sex: Male
  Weight: 60 kg

DRUGS (5)
  1. RELENZA [Suspect]
     Indication: INFLUENZA
     Dosage: 10MG TWICE PER DAY
     Route: 055
     Dates: start: 20080110, end: 20080110
  2. HUSCODE [Concomitant]
     Indication: INFLUENZA
     Route: 048
     Dates: start: 20080110
  3. METHISTA [Concomitant]
     Indication: INFLUENZA
     Route: 048
     Dates: start: 20080110
  4. KN 3B [Concomitant]
     Indication: INFLUENZA
     Route: 042
     Dates: start: 20080110, end: 20080110
  5. UNKNOWN MEDICATION [Concomitant]
     Indication: INFLUENZA
     Route: 042
     Dates: start: 20080110, end: 20080110

REACTIONS (1)
  - ABNORMAL BEHAVIOUR [None]
